FAERS Safety Report 5549998-9 (Version None)
Quarter: 2007Q4

REPORT INFORMATION
  Report Type: 
  Country: None (occurrence: None)
  Receive Date: 20071128
  Receipt Date: 20070120
  Transmission Date: 20080405
  Serious: Yes (Other)
  Sender: FDA-Public Use
  Company Number: 2007005870

PATIENT
  Sex: Female

DRUGS (5)
  1. LIPITOR [Suspect]
     Indication: BLOOD CHOLESTEROL INCREASED
     Dosage: 10 MG (10 MG)
  2. CADUET [Suspect]
     Indication: BLOOD CHOLESTEROL INCREASED
     Dosage: 20MG/5MG
     Dates: start: 20061201
  3. TRAZODONE HCL [Concomitant]
  4. LANOXIN [Concomitant]
  5. ANTI-ASTHMATICS (ANTI-ASTHMATICS) [Concomitant]

REACTIONS (5)
  - BLOOD PRESSURE DECREASED [None]
  - DRUG INEFFECTIVE [None]
  - GAIT DISTURBANCE [None]
  - HYPERTENSION [None]
  - INFLUENZA [None]
